FAERS Safety Report 12783450 (Version 1)
Quarter: 2016Q3

REPORT INFORMATION
  Report Type: Spontaneous
  Country: US (occurrence: US)
  Receive Date: 20160927
  Receipt Date: 20160927
  Transmission Date: 20161109
  Serious: No
  Sender: FDA-Public Use
  Company Number: US-009507513-1608USA014605

PATIENT
  Age: 37 Year
  Sex: Female

DRUGS (3)
  1. FOLLISTIM [Suspect]
     Active Substance: FOLLITROPIN
     Dosage: 225 IU, QD
     Route: 058
     Dates: start: 20160821, end: 20160822
  2. FOLLISTIM [Suspect]
     Active Substance: FOLLITROPIN
     Dosage: 225 IU, QD
     Route: 058
     Dates: start: 20160818, end: 20160820
  3. FOLLISTIM [Suspect]
     Active Substance: FOLLITROPIN
     Dosage: 450 IU, QD
     Route: 058
     Dates: start: 201604

REACTIONS (1)
  - Rash [Unknown]

NARRATIVE: CASE EVENT DATE: 20160822
